FAERS Safety Report 19003168 (Version 2)
Quarter: 2022Q4

REPORT INFORMATION
  Report Type: Spontaneous
  Country: US (occurrence: US)
  Receive Date: 20210312
  Receipt Date: 20221220
  Transmission Date: 20230113
  Serious: Yes (Death)
  Sender: FDA-Public Use
  Company Number: US-PFIZER INC-2021153470

PATIENT
  Age: 88 Year
  Sex: Male

DRUGS (1)
  1. VYNDAMAX [Suspect]
     Active Substance: TAFAMIDIS
     Indication: Amyloidosis senile
     Dosage: 61 MG, DAILY

REACTIONS (2)
  - Death [Fatal]
  - Peripheral swelling [Unknown]
